FAERS Safety Report 8129913-4 (Version None)
Quarter: 2012Q1

REPORT INFORMATION
  Report Type: 
  Country: None (occurrence: None)
  Receive Date: 20120210
  Receipt Date: 20120201
  Transmission Date: 20120608
  Serious: Yes (Life-Threatening, Hospitalization, Disabling)
  Sender: FDA-Public Use
  Company Number: US-ROCHE-791226

PATIENT
  Sex: Female
  Weight: 73.9 kg

DRUGS (31)
  1. VICODIN [Concomitant]
  2. VERAMIL [Concomitant]
  3. ACETAMINOPHEN [Concomitant]
     Dates: start: 20070524, end: 20070526
  4. ANCEF [Concomitant]
     Dates: start: 20070522, end: 20070523
  5. ACTONEL [Concomitant]
  6. ACTEMRA [Suspect]
     Dosage: EACH MONTH
     Route: 042
     Dates: start: 20070806
  7. PREDNISONE [Concomitant]
     Route: 048
  8. PROTONIX [Concomitant]
  9. SKELAXIN [Concomitant]
  10. ACTEMRA [Suspect]
     Dosage: FREQUENCY: QMONTH
     Route: 042
     Dates: start: 20110706
  11. FOLIC ACID [Concomitant]
  12. PROTONIX [Concomitant]
  13. DIGOXIN INJECTABLE [Concomitant]
     Dosage: 0.25 MG/ML
     Dates: start: 20070523, end: 20070523
  14. TORADOL [Concomitant]
     Dosage: DOSE: 60 MG/2ML
     Dates: start: 20070522, end: 20070527
  15. ZOFRAN [Concomitant]
     Dates: start: 20070526, end: 20070526
  16. BENAZEPRIL HYDROCHLORIDE [Concomitant]
  17. PREDNISONE [Concomitant]
     Route: 048
  18. FOLIC ACID [Concomitant]
  19. VICODIN [Concomitant]
  20. BENICAR [Concomitant]
  21. IBUPROFEN [Concomitant]
  22. NEURONTIN [Concomitant]
  23. IRON [Concomitant]
  24. BENADRYL [Concomitant]
     Dates: start: 20070524, end: 20070524
  25. COUMADIN [Concomitant]
     Dates: start: 20070522, end: 20070526
  26. IRON DEXTRAN [Concomitant]
     Dates: start: 20110705, end: 20110705
  27. OMEPRAZOLE [Concomitant]
     Dates: start: 20110308
  28. ACTEMRA [Suspect]
     Indication: RHEUMATOID ARTHRITIS
     Dosage: DATE OF LAST DOSE PRIOR TO SEPSIS: 06/JUL/2011
     Route: 042
     Dates: start: 20070806
  29. PREDNISONE [Concomitant]
     Route: 048
  30. VERAPAMIL [Concomitant]
     Dates: start: 20070522, end: 20070527
  31. PERCOCET [Concomitant]
     Dosage: TAKEN: ON 31 AUGUST 2006, 350 MG. 328 MG FROM MAY 2007 TO 26 MAY 2007.
     Dates: start: 20060831, end: 20070526

REACTIONS (3)
  - DIVERTICULAR PERFORATION [None]
  - DIVERTICULITIS [None]
  - SEPSIS [None]
